FAERS Safety Report 25844490 (Version 3)
Quarter: 2025Q4

REPORT INFORMATION
  Report Type: Spontaneous
  Country: AU (occurrence: AU)
  Receive Date: 20250925
  Receipt Date: 20251126
  Transmission Date: 20260118
  Serious: Yes (Hospitalization)
  Sender: AMGEN
  Company Number: AU-SERVIER-S25013793

PATIENT
  Age: 22 Year
  Sex: Female

DRUGS (11)
  1. IVABRADINE HYDROCHLORIDE [Suspect]
     Active Substance: IVABRADINE HYDROCHLORIDE
     Indication: Postural orthostatic tachycardia syndrome
     Dosage: 2.5 MG, BID
     Route: 048
     Dates: start: 202509, end: 202510
  2. IVABRADINE HYDROCHLORIDE [Suspect]
     Active Substance: IVABRADINE HYDROCHLORIDE
     Dosage: 2.5 MG, QD
     Route: 048
     Dates: start: 202509
  3. IVABRADINE HYDROCHLORIDE [Suspect]
     Active Substance: IVABRADINE HYDROCHLORIDE
     Dosage: 5 MG, BID
     Route: 048
     Dates: start: 202509, end: 202509
  4. NEXIUM [Suspect]
     Active Substance: ESOMEPRAZOLE MAGNESIUM
     Indication: Dyspepsia
     Dosage: UNK, PRN
     Route: 065
     Dates: start: 2012
  5. LORATADINE [Concomitant]
     Active Substance: LORATADINE
     Indication: Seasonal allergy
     Dosage: UNK, PRN
     Route: 065
     Dates: start: 2008
  6. LORATADINE [Concomitant]
     Active Substance: LORATADINE
     Indication: Hypersensitivity
  7. LOPERAMIDE HYDROCHLORIDE [Concomitant]
     Active Substance: LOPERAMIDE HYDROCHLORIDE
     Indication: Dyspepsia
     Dosage: UNK, PRN
     Route: 065
     Dates: start: 2020
  8. ONDANSETRON [Concomitant]
     Active Substance: ONDANSETRON
     Indication: Nausea
     Dosage: UNK, PRN
     Route: 065
     Dates: start: 202406
  9. TOPIRAMATE [Concomitant]
     Active Substance: TOPIRAMATE
     Indication: Aura
     Dosage: 50 MG, QD
     Route: 065
     Dates: start: 202409
  10. TOPIRAMATE [Concomitant]
     Active Substance: TOPIRAMATE
     Indication: Migraine
  11. Progestogens nos [Concomitant]
     Indication: Dysmenorrhoea
     Dosage: UNK, QD
     Route: 065
     Dates: start: 202509, end: 2025

REACTIONS (5)
  - Chest pain [Recovered/Resolved]
  - Nausea [Recovering/Resolving]
  - Diarrhoea [Recovering/Resolving]
  - Tremor [Recovering/Resolving]
  - Visual impairment [Recovered/Resolved]

NARRATIVE: CASE EVENT DATE: 20250901
